FAERS Safety Report 7146147-0 (Version None)
Quarter: 2010Q4

REPORT INFORMATION
  Report Type: 
  Country: None (occurrence: None)
  Receive Date: 20101208
  Receipt Date: 20101129
  Transmission Date: 20110411
  Serious: Yes (Other)
  Sender: FDA-Public Use
  Company Number: GB-TEVA-258594ISR

PATIENT
  Age: 64 Year
  Sex: Male

DRUGS (4)
  1. DOXORUBICIN [Suspect]
     Indication: HODGKIN'S DISEASE MIXED CELLULARITY STAGE UNSPECIFIED
  2. BLEOMYCIN [Suspect]
     Indication: HODGKIN'S DISEASE MIXED CELLULARITY STAGE UNSPECIFIED
  3. DACARBAZINE [Suspect]
     Indication: HODGKIN'S DISEASE MIXED CELLULARITY STAGE UNSPECIFIED
  4. VINBLASTINE [Suspect]
     Indication: HODGKIN'S DISEASE MIXED CELLULARITY STAGE UNSPECIFIED

REACTIONS (1)
  - PULMONARY TOXICITY [None]
